FAERS Safety Report 21993345 (Version 2)
Quarter: 2023Q1

REPORT INFORMATION
  Report Type: Spontaneous
  Country: US (occurrence: US)
  Receive Date: 20230215
  Receipt Date: 20230306
  Transmission Date: 20230418
  Serious: Yes (Death, Other)
  Sender: FDA-Public Use
  Company Number: US-JNJFOC-20230211002

PATIENT
  Age: 68 Year
  Sex: Female

DRUGS (3)
  1. TECLISTAMAB [Suspect]
     Active Substance: TECLISTAMAB
     Indication: Plasma cell myeloma refractory
     Dosage: STEP-UP DOSE 1
     Route: 058
     Dates: start: 20221228
  2. TECLISTAMAB [Suspect]
     Active Substance: TECLISTAMAB
     Dosage: STEP-UP DOSE 2
     Route: 058
     Dates: start: 20221230
  3. TECLISTAMAB [Suspect]
     Active Substance: TECLISTAMAB
     Dosage: STEP-UP DOSE 3
     Route: 058
     Dates: start: 20230101

REACTIONS (3)
  - Plasma cell myeloma [Fatal]
  - Thrombocytopenia [Recovering/Resolving]
  - Blood bilirubin increased [Recovering/Resolving]
